FAERS Safety Report 14432612 (Version 6)
Quarter: 2018Q2

REPORT INFORMATION
  Report Type: Spontaneous
  Country: CA (occurrence: CA)
  Receive Date: 20180124
  Receipt Date: 20180413
  Transmission Date: 20180711
  Serious: Yes (Other)
  Sender: FDA-Public Use
  Company Number: CA-CELLTRION INC.-2017CA003787

PATIENT

DRUGS (15)
  1. INFLECTRA [Suspect]
     Active Substance: INFLIXIMAB-DYYB
     Dosage: 200 MG
     Route: 042
     Dates: start: 20171002
  2. INFLECTRA [Suspect]
     Active Substance: INFLIXIMAB-DYYB
     Dosage: UNK
     Route: 065
  3. HYDROCORTISONE. [Concomitant]
     Active Substance: HYDROCORTISONE
     Dosage: UNK, AS NEEDED
     Route: 065
  4. CONSTELLA [Concomitant]
     Active Substance: LINACLOTIDE
     Dosage: 145 MG, DAILY
     Route: 065
  5. INFLECTRA [Suspect]
     Active Substance: INFLIXIMAB-DYYB
     Dosage: 370 MG, CYCLIC (EVERY 8 WEEKS)
     Route: 042
     Dates: start: 20171127
  6. INFLECTRA [Suspect]
     Active Substance: INFLIXIMAB-DYYB
     Indication: RHEUMATOID ARTHRITIS
     Dosage: 200 MG, (Q 0, 2, 6 WEEKS THEN EVERY 8 WEEKS FOR 12 MONTHS)
     Route: 042
     Dates: start: 20170308
  7. PREVACID [Concomitant]
     Active Substance: LANSOPRAZOLE
     Dosage: 30 MG, DAILY
     Route: 065
  8. ACYCLOVIR                          /00587301/ [Concomitant]
     Active Substance: ACYCLOVIR
     Dosage: 400 MG, AS NEEDED
     Route: 065
  9. INFLECTRA [Suspect]
     Active Substance: INFLIXIMAB-DYYB
     Dosage: 370 MG, CYCLIC, EVERY (EVERY 0,2, 6 WEEKS, THEN EVERY 8 WEEKS)
     Route: 042
  10. INFLECTRA [Suspect]
     Active Substance: INFLIXIMAB-DYYB
     Dosage: UNK
     Route: 065
  11. HYDROMORPHONE /00080902/ [Concomitant]
     Dosage: 8 MG, EVERY 4 HRS
     Route: 065
     Dates: start: 2010
  12. CLONAZEPAM. [Concomitant]
     Active Substance: CLONAZEPAM
     Dosage: 5 MG, 1X/DAY (AT BEDTIME)
     Route: 065
  13. INFLECTRA [Suspect]
     Active Substance: INFLIXIMAB-DYYB
     Dosage: 370 MG, CYCLIC
     Route: 042
     Dates: start: 20180122, end: 20180122
  14. LEFLUNOMIDE. [Concomitant]
     Active Substance: LEFLUNOMIDE
     Dosage: 20 MG, DAILY
     Route: 065
     Dates: start: 201509
  15. TOPICORT /00028604/ [Concomitant]
     Active Substance: HYDROCORTISONE ACETATE
     Dosage: UNK, AS NEEDED
     Route: 065

REACTIONS (18)
  - Blood iron decreased [Not Recovered/Not Resolved]
  - Dry eye [Unknown]
  - Lacrimal disorder [Not Recovered/Not Resolved]
  - Rash [Not Recovered/Not Resolved]
  - Cholecystitis [Unknown]
  - Drug ineffective [Not Recovered/Not Resolved]
  - Myalgia [Unknown]
  - Rosacea [Not Recovered/Not Resolved]
  - Product use issue [Unknown]
  - Off label use [Not Recovered/Not Resolved]
  - Heart rate abnormal [Unknown]
  - Neuralgia [Unknown]
  - Wound infection [Unknown]
  - Secretion discharge [Not Recovered/Not Resolved]
  - Ear infection [Not Recovered/Not Resolved]
  - Anaemia [Not Recovered/Not Resolved]
  - Diabetic neuropathy [Unknown]
  - Blood pressure fluctuation [Unknown]

NARRATIVE: CASE EVENT DATE: 201212
